FAERS Safety Report 14970243 (Version 2)
Quarter: 2018Q2

REPORT INFORMATION
  Report Type: Spontaneous
  Country: US (occurrence: US)
  Receive Date: 20180604
  Receipt Date: 20180612
  Transmission Date: 20180711
  Serious: Yes (Death)
  Sender: FDA-Public Use
  Company Number: US-VIFOR (INTERNATIONAL) INC.-VIT-2018-04728

PATIENT
  Sex: Male

DRUGS (14)
  1. B12-ACTIVE [Concomitant]
  2. CALCIUM CARBONATE~~VITAMIN D NOS [Concomitant]
  3. CALCITRIOL. [Concomitant]
     Active Substance: CALCITRIOL
  4. AZATHIOPRINE. [Concomitant]
     Active Substance: AZATHIOPRINE
  5. PROGRAF [Concomitant]
     Active Substance: TACROLIMUS\TACROLIMUS ANHYDROUS
  6. MAGNESIUM [Concomitant]
     Active Substance: MAGNESIUM
  7. ATORVASTATIN CALCIUM. [Concomitant]
     Active Substance: ATORVASTATIN CALCIUM
  8. METOPROLOL SUCCINATE. [Concomitant]
     Active Substance: METOPROLOL SUCCINATE
  9. VITAMINS NOS [Concomitant]
     Active Substance: VITAMINS
  10. OMEPRAZOLE. [Concomitant]
     Active Substance: OMEPRAZOLE
  11. VELTASSA [Suspect]
     Active Substance: PATIROMER
     Indication: HYPERKALAEMIA
     Route: 048
     Dates: start: 20160615, end: 20180509
  12. ACETYLSALICYLIC ACID [Concomitant]
     Active Substance: ASPIRIN
  13. HYDROCHLOROTHIAZIDE. [Concomitant]
     Active Substance: HYDROCHLOROTHIAZIDE
  14. IRON [Concomitant]
     Active Substance: IRON

REACTIONS (1)
  - Hospice care [Fatal]

NARRATIVE: CASE EVENT DATE: 2016
